FAERS Safety Report 8860266 (Version 1)
Quarter: 2012Q4

REPORT INFORMATION
  Report Type: 
  Country: NZ (occurrence: NZ)
  Receive Date: 20121025
  Receipt Date: 20121025
  Transmission Date: 20130627
  Serious: Yes (Hospitalization)
  Sender: FDA-Public Use
  Company Number: PHHY2012NZ091975

PATIENT
  Age: 30 Year
  Sex: Male

DRUGS (4)
  1. CLOZARIL [Suspect]
     Indication: SCHIZOPHRENIA
     Dosage: 275 mg, at nocte
     Route: 048
     Dates: start: 20120713, end: 20120810
  2. METFORMIN [Concomitant]
     Indication: DIABETES MELLITUS
     Dosage: 1 g, TDS
     Route: 048
  3. GLICLAZIDE [Concomitant]
     Indication: DIABETES MELLITUS
     Dosage: 80 mg, BD
     Route: 048
  4. ASPIRINE [Concomitant]
     Dosage: 100 mg, OD
     Route: 048

REACTIONS (4)
  - Conduction disorder [Unknown]
  - Heart rate increased [Recovering/Resolving]
  - Sinus tachycardia [Recovering/Resolving]
  - Blood glucose increased [Unknown]
